FAERS Safety Report 19732367 (Version 1)
Quarter: 2021Q3

REPORT INFORMATION
  Report Type: Spontaneous
  Country: NL (occurrence: NL)
  Receive Date: 20210822
  Receipt Date: 20210822
  Transmission Date: 20211014
  Serious: Yes (Other)
  Sender: FDA-Public Use
  Company Number: NL-TEVA-2021-NL-1943370

PATIENT

DRUGS (1)
  1. QUETIAPINE FUMARAAT / BRAND NAME NOT SPECIFIED [Suspect]
     Active Substance: QUETIAPINE FUMARATE
     Indication: ANXIETY
     Dates: start: 20200222, end: 20201231

REACTIONS (13)
  - Memory impairment [Unknown]
  - Confusional state [Unknown]
  - Nightmare [Unknown]
  - Vision blurred [Unknown]
  - Dyspnoea [Unknown]
  - Speech disorder [Unknown]
  - Vasodilatation [Unknown]
  - Headache [Unknown]
  - Head injury [Unknown]
  - Aphthous ulcer [Unknown]
  - Pyrexia [Unknown]
  - Heart rate increased [Unknown]
  - Anxiety [Unknown]
